FAERS Safety Report 7968740-5 (Version None)
Quarter: 2011Q4

REPORT INFORMATION
  Report Type: 
  Country: None (occurrence: None)
  Receive Date: 20111209
  Receipt Date: 20111130
  Transmission Date: 20120403
  Serious: Yes (Hospitalization)
  Sender: FDA-Public Use
  Company Number: US-JNJFOC-20111200402

PATIENT
  Sex: Male
  Weight: 77.11 kg

DRUGS (2)
  1. CYCLOBENZAPRINE [Suspect]
     Indication: BACK PAIN
     Route: 048
  2. FLEXERIL [Suspect]
     Indication: BACK PAIN
     Route: 048
     Dates: start: 20090101

REACTIONS (6)
  - THYROID CANCER [None]
  - ALTERED STATE OF CONSCIOUSNESS [None]
  - THROMBOSIS [None]
  - PRODUCT QUALITY ISSUE [None]
  - INTERVERTEBRAL DISC PROTRUSION [None]
  - BLOOD CHOLESTEROL INCREASED [None]
